FAERS Safety Report 19734739 (Version 1)
Quarter: 2021Q3

REPORT INFORMATION
  Report Type: Other
  Country: BE (occurrence: BE)
  Receive Date: 20210823
  Receipt Date: 20210823
  Transmission Date: 20211014
  Serious: Yes (Hospitalization)
  Sender: FDA-Public Use
  Company Number: BE-ORCHID HEALTHCARE-2115483

PATIENT
  Age: 33 Year
  Sex: Female

DRUGS (2)
  1. DIVALPROEX SODIUM. [Suspect]
     Active Substance: DIVALPROEX SODIUM
     Indication: EPILEPSY
     Route: 065
  2. LORAZEPAM. [Interacting]
     Active Substance: LORAZEPAM
     Route: 042

REACTIONS (3)
  - Drug interaction [Recovered/Resolved]
  - Metabolic encephalopathy [Recovered/Resolved]
  - Stupor [Recovered/Resolved]
